FAERS Safety Report 19037451 (Version 1)
Quarter: 2021Q1

REPORT INFORMATION
  Report Type: Spontaneous
  Country: FR (occurrence: FR)
  Receive Date: 20210322
  Receipt Date: 20210322
  Transmission Date: 20210420
  Serious: Yes (Hospitalization, Other)
  Sender: FDA-Public Use
  Company Number: FR-SA-2021SA095528

PATIENT
  Age: 38 Year
  Sex: Male

DRUGS (4)
  1. DUPILUMAB [Suspect]
     Active Substance: DUPILUMAB
     Indication: ASTHMA
  2. METHOTREXATE. [Suspect]
     Active Substance: METHOTREXATE
  3. CYCLOSPORINE. [Suspect]
     Active Substance: CYCLOSPORINE
  4. DUPILUMAB [Suspect]
     Active Substance: DUPILUMAB
     Indication: DERMATITIS ATOPIC

REACTIONS (7)
  - Dyspepsia [Unknown]
  - Cholestasis [Unknown]
  - Autoimmune hepatitis [Unknown]
  - Cell death [Unknown]
  - Asthma [Unknown]
  - Dermatitis atopic [Unknown]
  - Balance disorder [Unknown]

NARRATIVE: CASE EVENT DATE: 202004
